FAERS Safety Report 20621050 (Version 3)
Quarter: 2022Q2

REPORT INFORMATION
  Report Type: Report from Study
  Country: CN (occurrence: CN)
  Receive Date: 20220322
  Receipt Date: 20220629
  Transmission Date: 20220721
  Serious: Yes (Life-Threatening, Other)
  Sender: FDA-Public Use
  Company Number: CN-FOSUNKITE-FOSUNKITE-20220011

PATIENT
  Age: 51 Year
  Sex: Female

DRUGS (10)
  1. AXICABTAGENE CILOLEUCEL [Suspect]
     Active Substance: AXICABTAGENE CILOLEUCEL
     Indication: Diffuse large B-cell lymphoma
     Dosage: 68 ML
     Route: 041
     Dates: start: 20220308, end: 20220308
  2. CYCLOPHOSPHAMIDE [Concomitant]
     Active Substance: CYCLOPHOSPHAMIDE
     Indication: Lymphodepletion
     Dosage: 43 MG
     Route: 041
     Dates: start: 20220303, end: 20220305
  3. FLUDARABINE [Concomitant]
     Active Substance: FLUDARABINE PHOSPHATE
     Indication: Lymphodepletion
     Dosage: 43 MG
     Route: 041
     Dates: start: 20220303, end: 20220304
  4. ZANUBRUTINIB [Concomitant]
     Active Substance: ZANUBRUTINIB
     Indication: Diffuse large B-cell lymphoma
     Dosage: 160 MG, BID
     Route: 048
     Dates: start: 20210929, end: 20220311
  5. DEXAMETHASONE [Concomitant]
     Active Substance: DEXAMETHASONE
     Indication: Diffuse large B-cell lymphoma
     Dosage: 10 MG, QD
     Route: 041
     Dates: start: 20220201, end: 20220206
  6. DEXAMETHASONE [Concomitant]
     Active Substance: DEXAMETHASONE
     Dosage: 40 MG
     Route: 041
     Dates: start: 20220208, end: 20220211
  7. DECITABINE [Concomitant]
     Active Substance: DECITABINE
     Indication: Diffuse large B-cell lymphoma
     Dosage: 14 MG; D1-D5
     Route: 041
     Dates: start: 20220202, end: 20220206
  8. RITUXIMAB [Concomitant]
     Active Substance: RITUXIMAB
     Dosage: 560 MG D0
     Route: 041
     Dates: start: 20220207, end: 20220207
  9. GEMCITABINE [Concomitant]
     Active Substance: GEMCITABINE
     Dosage: 1.4 G D1
     Dates: start: 20220208
  10. CISPLATIN [Concomitant]
     Active Substance: CISPLATIN
     Dosage: 108 MG
     Route: 041
     Dates: start: 20220208, end: 20220208

REACTIONS (2)
  - Immune effector cell-associated neurotoxicity syndrome [Not Recovered/Not Resolved]
  - Cytokine release syndrome [Not Recovered/Not Resolved]

NARRATIVE: CASE EVENT DATE: 20220308
